FAERS Safety Report 8542870-1 (Version None)
Quarter: 2012Q3

REPORT INFORMATION
  Report Type: 
  Country: None (occurrence: None)
  Receive Date: 20120727
  Receipt Date: 20120718
  Transmission Date: 20120928
  Serious: Yes (Other)
  Sender: FDA-Public Use
  Company Number: AU-009507513-1207AUS006787

PATIENT

DRUGS (3)
  1. SIMVASTATIN [Suspect]
     Dosage: UNK
     Route: 048
     Dates: start: 20120718
  2. PERINDOPRIL ERBUMINE [Concomitant]
  3. SIMVASTATIN [Suspect]
     Dosage: UNK
     Route: 048
     Dates: start: 20080101, end: 20080101

REACTIONS (5)
  - DEHYDRATION [None]
  - MYALGIA [None]
  - PRERENAL FAILURE [None]
  - VOMITING [None]
  - DIARRHOEA [None]
